FAERS Safety Report 16965764 (Version 1)
Quarter: 2019Q4

REPORT INFORMATION
  Report Type: Spontaneous
  Country: US (occurrence: US)
  Receive Date: 20191028
  Receipt Date: 20191028
  Transmission Date: 20200122
  Serious: Yes (Other)
  Sender: FDA-Public Use
  Company Number: US-PFIZER INC-2019461183

PATIENT
  Sex: Male

DRUGS (2)
  1. LEXAPRO [Concomitant]
     Active Substance: ESCITALOPRAM OXALATE
     Indication: DEPRESSION
  2. XANAX [Suspect]
     Active Substance: ALPRAZOLAM
     Dosage: UNK

REACTIONS (7)
  - Bipolar disorder [Unknown]
  - Social anxiety disorder [Unknown]
  - Mood swings [Unknown]
  - Major depression [Unknown]
  - Phobia [Unknown]
  - Stress [Unknown]
  - Drug dependence [Unknown]
